FAERS Safety Report 7590738-X (Version None)
Quarter: 2011Q3

REPORT INFORMATION
  Report Type: 
  Country: None (occurrence: None)
  Receive Date: 20110705
  Receipt Date: 20110621
  Transmission Date: 20111222
  Serious: Yes (Other)
  Sender: FDA-Public Use
  Company Number: PHHY2011MX56031

PATIENT
  Sex: Female

DRUGS (1)
  1. ZOLEDRONIC ACID [Suspect]
     Indication: OSTEOPOROSIS
     Dosage: 5 MG/100 ML
     Route: 042
     Dates: start: 20110512

REACTIONS (6)
  - HYPERKERATOSIS [None]
  - SKIN EXFOLIATION [None]
  - ABASIA [None]
  - OEDEMA PERIPHERAL [None]
  - VEIN DISORDER [None]
  - MELANOCYTIC NAEVUS [None]
